FAERS Safety Report 8472486-7 (Version None)
Quarter: 2012Q2

REPORT INFORMATION
  Report Type: 
  Country: None (occurrence: None)
  Receive Date: 20120627
  Receipt Date: 20120103
  Transmission Date: 20120825
  Serious: No
  Sender: FDA-Public Use
  Company Number: US-AMGEN-USASP2012010383

PATIENT

DRUGS (1)
  1. PROCRIT [Suspect]
     Indication: DIALYSIS
     Dosage: 10000 IU, UNK
     Route: 058
     Dates: start: 20120103

REACTIONS (1)
  - WRONG TECHNIQUE IN DRUG USAGE PROCESS [None]
